FAERS Safety Report 4487522-2 (Version None)
Quarter: 2004Q3

REPORT INFORMATION
  Report Type: 
  Country: None (occurrence: None)
  Receive Date: 20040921
  Receipt Date: 20040412
  Transmission Date: 20050211
  Serious: Yes (Hospitalization)
  Sender: FDA-Public Use
  Company Number: 163-20785-04040434

PATIENT
  Age: 56 Year
  Sex: Female

DRUGS (7)
  1. THALOMID [Suspect]
     Indication: METASTATIC MALIGNANT MELANOMA
     Dosage: 400 MG,  Q HS;  400 MG, DAILY   :   ORAL
     Route: 048
     Dates: start: 20040105, end: 20040307
  2. THALOMID [Suspect]
     Indication: METASTATIC MALIGNANT MELANOMA
     Dosage: 400 MG,  Q HS;  400 MG, DAILY   :   ORAL
     Route: 048
     Dates: start: 20040310, end: 20040323
  3. TEMODAR [Suspect]
     Indication: METASTATIC MALIGNANT MELANOMA
     Dosage: 150 MG, Q HS  X 6 WEEKS, ORAL
     Route: 048
     Dates: start: 20040105
  4. ZESTRIL [Concomitant]
  5. PRILOSEC [Concomitant]
  6. MAXZIDE [Concomitant]
  7. ZOFRAN [Concomitant]

REACTIONS (4)
  - BRADYCARDIA [None]
  - DISEASE PROGRESSION [None]
  - SICK SINUS SYNDROME [None]
  - SYNCOPE [None]
